FAERS Safety Report 18424890 (Version 1)
Quarter: 2020Q4

REPORT INFORMATION
  Report Type: Spontaneous
  Country: US (occurrence: US)
  Receive Date: 20201026
  Receipt Date: 20201026
  Transmission Date: 20210114
  Serious: No
  Sender: FDA-Public Use
  Company Number: US-SA-2020SA292287

PATIENT

DRUGS (1)
  1. SELSUN BLUE [Suspect]
     Active Substance: SELENIUM SULFIDE
     Indication: SEBORRHOEA

REACTIONS (1)
  - Conjunctivitis [Unknown]
